FAERS Safety Report 4825743-7 (Version None)
Quarter: 2005Q4

REPORT INFORMATION
  Report Type: 
  Country: None (occurrence: None)
  Receive Date: 20051109
  Receipt Date: 20051028
  Transmission Date: 20060501
  Serious: Yes (Other)
  Sender: FDA-Public Use
  Company Number: 2005141151

PATIENT
  Age: 61 Year
  Sex: Female
  Weight: 90.7194 kg

DRUGS (12)
  1. NEURONTIN [Suspect]
     Indication: NEUROPATHY
     Dosage: 900 MG (300 MG, 3 IN 1 D),
     Route: 048
     Dates: start: 20020101, end: 20050501
  2. CYMBALTA [Suspect]
     Indication: NEUROPATHY
     Dosage: 60 MG (60 MG, 1 IN 1 D),
     Dates: start: 20050201, end: 20050401
  3. TOPAMAX [Suspect]
     Indication: NEUROPATHY
     Dosage: 50 MG (25 MG, 2 IN 1 D),
     Dates: start: 20050401
  4. PREMARIN [Concomitant]
  5. ULTRAM [Concomitant]
  6. PROPOXYPHENE HCL AND ACETAMINOPHEN [Concomitant]
  7. ETODOLAC [Concomitant]
  8. HYDROCHLOROTHIAZIDE [Concomitant]
  9. ATENOLOL [Concomitant]
  10. CLONAZEPAM [Concomitant]
  11. K-DUR 10 [Concomitant]
  12. RANITIDINE HCL [Concomitant]

REACTIONS (10)
  - BALANCE DISORDER [None]
  - BODY HEIGHT DECREASED [None]
  - DIABETES MELLITUS [None]
  - DRUG EFFECT DECREASED [None]
  - DRUG INEFFECTIVE [None]
  - DYSARTHRIA [None]
  - FALL [None]
  - GAIT DISTURBANCE [None]
  - LOSS OF CONSCIOUSNESS [None]
  - SKIN LACERATION [None]
